FAERS Safety Report 6960903-0 (Version None)
Quarter: 2010Q3

REPORT INFORMATION
  Report Type: 
  Country: None (occurrence: None)
  Receive Date: 20100901
  Receipt Date: 20100728
  Transmission Date: 20110219
  Serious: No
  Sender: FDA-Public Use
  Company Number: US-PFIZER INC-2010082176

PATIENT
  Sex: Female
  Weight: 81.633 kg

DRUGS (1)
  1. ESTRING [Suspect]
     Indication: OESTROGEN REPLACEMENT THERAPY
     Dosage: UNK
     Route: 067
     Dates: start: 20100625

REACTIONS (1)
  - HOT FLUSH [None]
